FAERS Safety Report 11115499 (Version 3)
Quarter: 2015Q3

REPORT INFORMATION
  Report Type: Report from Study
  Country: CA (occurrence: CA)
  Receive Date: 20150515
  Receipt Date: 20150717
  Transmission Date: 20151125
  Serious: Yes (Other)
  Sender: FDA-Public Use
  Company Number: CA-SA-2015SA023927

PATIENT
  Age: 29 Year
  Sex: Female

DRUGS (11)
  1. TYLENOL [Suspect]
     Active Substance: ACETAMINOPHEN
     Indication: HEADACHE
     Route: 065
     Dates: start: 20150224
  2. ACYCLOVIR. [Concomitant]
     Active Substance: ACYCLOVIR
     Indication: ANTIVIRAL TREATMENT
     Route: 048
     Dates: start: 20150223
  3. LEMTRADA [Suspect]
     Active Substance: ALEMTUZUMAB
     Indication: MULTIPLE SCLEROSIS
     Route: 042
     Dates: start: 20150223, end: 20150227
  4. CELEBREX [Concomitant]
     Active Substance: CELECOXIB
     Indication: PAIN
     Route: 048
  5. SYMBICORT [Concomitant]
     Active Substance: BUDESONIDE\FORMOTEROL FUMARATE DIHYDRATE
     Indication: ASTHMA
  6. VENTOLINE [Concomitant]
     Active Substance: ALBUTEROL
     Indication: ASTHMA
  7. AMANTADINE [Concomitant]
     Active Substance: AMANTADINE
     Indication: MULTIPLE SCLEROSIS
     Route: 048
  8. METHYLPREDNISOLONE. [Suspect]
     Active Substance: METHYLPREDNISOLONE
     Indication: MULTIPLE SCLEROSIS
     Route: 041
     Dates: start: 20150223, end: 20150227
  9. OMEPRAZOLE. [Concomitant]
     Active Substance: OMEPRAZOLE
     Indication: ANTACID THERAPY
     Route: 048
     Dates: start: 20150304
  10. METHYLPREDNISOLONE. [Suspect]
     Active Substance: METHYLPREDNISOLONE
     Indication: PREMEDICATION
     Route: 041
     Dates: start: 20150223, end: 20150227
  11. MICRONOR [Concomitant]
     Active Substance: NORETHINDRONE
     Indication: ORAL CONTRACEPTION
     Route: 048

REACTIONS (23)
  - Hiatus hernia [Recovered/Resolved]
  - Haemorrhoids [Recovered/Resolved]
  - Culture urine positive [Unknown]
  - Decreased appetite [Recovered/Resolved]
  - Rash generalised [Recovered/Resolved]
  - Lymphocyte count decreased [Recovered/Resolved]
  - Vomiting [Recovered/Resolved]
  - Cholecystitis [Unknown]
  - Gastrooesophageal reflux disease [Recovered/Resolved]
  - Headache [Recovering/Resolving]
  - Oropharyngeal pain [Recovered/Resolved]
  - Dyspepsia [Recovered/Resolved]
  - Epistaxis [Recovered/Resolved]
  - Dysgeusia [Recovering/Resolving]
  - Erythema [Not Recovered/Not Resolved]
  - Eosinophil count increased [Recovered/Resolved]
  - Back pain [Unknown]
  - Pruritus [Recovered/Resolved]
  - Glossodynia [Recovered/Resolved]
  - Gastritis [Recovered/Resolved]
  - Constipation [Recovered/Resolved]
  - Blood urine present [Unknown]
  - Abdominal pain upper [Recovered/Resolved]

NARRATIVE: CASE EVENT DATE: 2015
